FAERS Safety Report 7623805-2 (Version None)
Quarter: 2011Q3

REPORT INFORMATION
  Report Type: 
  Country: None (occurrence: None)
  Receive Date: 20110719
  Receipt Date: 20110719
  Transmission Date: 20111222
  Serious: No
  Sender: FDA-Public Use
  Company Number: None

PATIENT
  Sex: Female
  Weight: 62.1428 kg

DRUGS (1)
  1. AMBIEN CR [Suspect]
     Indication: INSOMNIA
     Dosage: 12.5 MG 1 PO QHS PO; 12.5 MG 2 PO QHS PO
     Route: 048
     Dates: start: 20061005, end: 20110708

REACTIONS (1)
  - PRODUCT SUBSTITUTION ISSUE [None]
